FAERS Safety Report 25129498 (Version 4)
Quarter: 2025Q4

REPORT INFORMATION
  Report Type: Report from Study
  Country: US (occurrence: US)
  Receive Date: 20250327
  Receipt Date: 20251231
  Transmission Date: 20260117
  Serious: No
  Sender: PFIZER
  Company Number: US-PFIZER INC-PV202400162126

PATIENT
  Age: 82 Year
  Sex: Male

DRUGS (3)
  1. VYNDAMAX [Suspect]
     Active Substance: TAFAMIDIS
     Indication: Acquired ATTR amyloidosis
     Dosage: 61 MG, 1X/DAY
     Route: 048
  2. VYNDAMAX [Suspect]
     Active Substance: TAFAMIDIS
     Indication: Amyloidosis
     Dosage: 20 MG, DAILY
     Route: 048
  3. NEURONTIN [Concomitant]
     Active Substance: GABAPENTIN
     Dosage: 600 MG, 2X/DAY
     Route: 048

REACTIONS (8)
  - Amnesia [Unknown]
  - Tremor [Unknown]
  - Post-traumatic stress disorder [Unknown]
  - Emotional disorder [Unknown]
  - Dysstasia [Unknown]
  - Bradykinesia [Unknown]
  - Memory impairment [Unknown]
  - Product prescribing error [Unknown]
